FAERS Safety Report 17634350 (Version 4)
Quarter: 2020Q2

REPORT INFORMATION
  Report Type: Spontaneous
  Country: US (occurrence: US)
  Receive Date: 20200407
  Receipt Date: 20200501
  Transmission Date: 20200713
  Serious: Yes (Death, Hospitalization)
  Sender: FDA-Public Use
  Company Number: US-ABBVIE-20K-163-3353405-00

PATIENT
  Age: 71 Year
  Sex: Male

DRUGS (1)
  1. IMBRUVICA [Suspect]
     Active Substance: IBRUTINIB
     Indication: WALDENSTROM^S MACROGLOBULINAEMIA
     Route: 048

REACTIONS (10)
  - Fall [Fatal]
  - Subdural haemorrhage [Unknown]
  - Hyperglycaemia [Unknown]
  - Coronavirus infection [Unknown]
  - Cerebral haemorrhage [Fatal]
  - Pneumonia [Unknown]
  - Epistaxis [Unknown]
  - Subdural haematoma [Fatal]
  - Anaemia [Unknown]
  - Mental status changes [Unknown]

NARRATIVE: CASE EVENT DATE: 202003
